FAERS Safety Report 26009990 (Version 1)
Quarter: 2025Q4

REPORT INFORMATION
  Report Type: Report from Study
  Country: ZA (occurrence: ZA)
  Receive Date: 20251107
  Receipt Date: 20251107
  Transmission Date: 20260117
  Serious: Yes (Other)
  Sender: ROCHE
  Company Number: ZA-ROCHE-10000023529

PATIENT
  Age: 63 Year
  Sex: Female

DRUGS (2)
  1. VABYSMO [Suspect]
     Active Substance: FARICIMAB-SVOA
     Indication: Diabetic retinal oedema
     Route: 050
     Dates: start: 20240515
  2. VABYSMO [Suspect]
     Active Substance: FARICIMAB-SVOA
     Indication: Macular degeneration
     Route: 050

REACTIONS (4)
  - Off label use [Unknown]
  - Optical coherence tomography abnormal [Not Recovered/Not Resolved]
  - Visual acuity tests abnormal [Unknown]
  - Retinal thickening [Unknown]

NARRATIVE: CASE EVENT DATE: 20250523
